FAERS Safety Report 4601116-7 (Version None)
Quarter: 2005Q1

REPORT INFORMATION
  Report Type: 
  Country: None (occurrence: None)
  Receive Date: 20050304
  Receipt Date: 20050304
  Transmission Date: 20050727
  Serious: Yes (Life-Threatening)
  Sender: FDA-Public Use
  Company Number: None

PATIENT
  Sex: Female
  Weight: 60 kg

DRUGS (12)
  1. GEMCITABINE 1000 MG/M2 DAYS 2, 16, OF 28 DAY CYCLE BEG CYCLE 2 [Suspect]
     Indication: HEPATIC NEOPLASM MALIGNANT
     Dosage: 1670 IV
     Route: 042
     Dates: start: 20041208, end: 20050302
  2. OXALIPLATIN 85 MG/M2 DAYS 2, 16 OF 28 DAY CYCLE BEG CYCLE 2 [Suspect]
     Indication: HEPATIC NEOPLASM MALIGNANT
     Dosage: 142 IV
     Route: 042
     Dates: start: 20041208, end: 20050302
  3. ATENOLOL [Concomitant]
  4. AMBIEN [Concomitant]
  5. COMPAZINE [Concomitant]
  6. LASIX [Concomitant]
  7. MARINOL [Concomitant]
  8. PROTONIX [Concomitant]
  9. DITROPAN [Concomitant]
  10. OXYCODONE HCL [Concomitant]
  11. NEXIUM [Concomitant]
  12. REGLAN [Concomitant]

REACTIONS (2)
  - DRUG TOXICITY [None]
  - LYMPHOPENIA [None]
